FAERS Safety Report 5065304-0 (Version None)
Quarter: 2006Q3

REPORT INFORMATION
  Report Type: 
  Country: None (occurrence: None)
  Receive Date: 20060731
  Receipt Date: 20060718
  Transmission Date: 20061208
  Serious: Yes (Other)
  Sender: FDA-Public Use
  Company Number: TR-JNJFOC-20060701539

PATIENT
  Age: 54 Year
  Sex: Male

DRUGS (4)
  1. REMICADE [Suspect]
     Indication: WEGENER'S GRANULOMATOSIS
     Route: 042
  2. CYCLOPHOSPHAMIDE [Suspect]
     Indication: WEGENER'S GRANULOMATOSIS
     Route: 048
  3. CORTICOSTEROIDS [Suspect]
     Indication: WEGENER'S GRANULOMATOSIS
  4. IMMUNE GLOBULIN INTRAVENOUS (HUMAN) [Concomitant]
     Indication: WEGENER'S GRANULOMATOSIS

REACTIONS (2)
  - PSEUDOMONAS INFECTION [None]
  - THYROIDITIS SUBACUTE [None]
